FAERS Safety Report 9393593 (Version 1)
Quarter: 2013Q3

REPORT INFORMATION
  Report Type: Spontaneous
  Country: US (occurrence: US)
  Receive Date: 20130710
  Receipt Date: 20130710
  Transmission Date: 20140515
  Serious: Yes (Hospitalization)
  Sender: FDA-Public Use
  Company Number: US-GLAXOSMITHKLINE-A1031777A

PATIENT
  Age: 41 Year
  Sex: Female

DRUGS (1)
  1. FLOLAN [Suspect]
     Indication: COR PULMONALE CHRONIC
     Dosage: 36.4NGKM UNKNOWN
     Route: 065
     Dates: start: 20090124

REACTIONS (1)
  - Spinal fracture [Unknown]
